FAERS Safety Report 4665471-4 (Version None)
Quarter: 2005Q2

REPORT INFORMATION
  Report Type: 
  Country: None (occurrence: None)
  Receive Date: 20050519
  Receipt Date: 20040507
  Transmission Date: 20051028
  Serious: Yes (Life-Threatening)
  Sender: FDA-Public Use
  Company Number: US-BRISTOL-MYERS SQUIBB COMPANY-12582300

PATIENT
  Age: 35 Year
  Sex: Female
  Weight: 60 kg

DRUGS (7)
  1. CYTOXAN [Suspect]
     Indication: HODGKIN'S DISEASE
     Route: 042
     Dates: start: 20040420, end: 20040420
  2. DECADRON [Concomitant]
     Indication: PREMEDICATION
     Route: 048
     Dates: start: 20040420
  3. KYTRIL [Concomitant]
     Indication: PREMEDICATION
     Route: 048
     Dates: start: 20040420
  4. ATIVAN [Concomitant]
     Indication: PREMEDICATION
     Route: 048
     Dates: start: 20040420
  5. MESNA [Concomitant]
     Route: 042
     Dates: start: 20040420
  6. SEROQUEL [Concomitant]
  7. TEGRETOL [Concomitant]

REACTIONS (5)
  - ANGIONEUROTIC OEDEMA [None]
  - DYSPNOEA [None]
  - RASH [None]
  - SWELLING FACE [None]
  - WHEEZING [None]
